FAERS Safety Report 18623647 (Version 1)
Quarter: 2020Q4

REPORT INFORMATION
  Report Type: Report from Study
  Country: FR (occurrence: FR)
  Receive Date: 20201216
  Receipt Date: 20201216
  Transmission Date: 20210114
  Serious: Yes (Other)
  Sender: FDA-Public Use
  Company Number: FR-GLAXOSMITHKLINE-FR2020247834

PATIENT
  Sex: Female

DRUGS (1)
  1. NIRAPARIB [Suspect]
     Active Substance: NIRAPARIB
     Indication: OVARIAN CANCER RECURRENT
     Dosage: 200 MILLIGRAM
     Route: 048

REACTIONS (6)
  - Renal tubular atrophy [Unknown]
  - Gastrointestinal toxicity [Unknown]
  - Acute kidney injury [Unknown]
  - Haematotoxicity [Unknown]
  - Kidney fibrosis [Unknown]
  - Neoplasm progression [Unknown]
